FAERS Safety Report 7617894-9 (Version None)
Quarter: 2011Q3

REPORT INFORMATION
  Report Type: 
  Country: None (occurrence: None)
  Receive Date: 20110718
  Receipt Date: 20110705
  Transmission Date: 20111222
  Serious: Yes (Disabling, Other)
  Sender: FDA-Public Use
  Company Number: ES-ELI_LILLY_AND_COMPANY-ES201106000041

PATIENT
  Age: 63 Year
  Sex: Female

DRUGS (1)
  1. FORTEO [Suspect]
     Dosage: UNK
     Dates: start: 20090401, end: 20110514

REACTIONS (6)
  - HAEMORRHAGE [None]
  - RENAL COLIC [None]
  - ABDOMINAL DISTENSION [None]
  - BLOOD IRON DECREASED [None]
  - DYSPNOEA [None]
  - FATIGUE [None]
